FAERS Safety Report 9660261 (Version 1)
Quarter: 2013Q4

REPORT INFORMATION
  Report Type: Spontaneous
  Country: US (occurrence: US)
  Receive Date: 20131031
  Receipt Date: 20131031
  Transmission Date: 20140711
  Serious: Yes (Hospitalization)
  Sender: FDA-Public Use
  Company Number: US-BAYER-2013-131274

PATIENT
  Sex: Male

DRUGS (4)
  1. ALEVE CAPLET [Suspect]
  2. BAYER GENUINE ASPIRIN ORIGINAL STRENGTH [Interacting]
  3. ADVIL [Suspect]
  4. CELEBREX [Interacting]
     Indication: BACK PAIN
     Dosage: 200 MG, TID
     Dates: end: 201310

REACTIONS (4)
  - Cerebral haemorrhage [Recovered/Resolved]
  - Dizziness [Recovered/Resolved]
  - Syncope [Recovered/Resolved]
  - Drug interaction [None]
